FAERS Safety Report 21209833 (Version 1)
Quarter: 2022Q3

REPORT INFORMATION
  Report Type: Other
  Country: DE (occurrence: DE)
  Receive Date: 20220813
  Receipt Date: 20220813
  Transmission Date: 20221027
  Serious: No
  Sender: FDA-Public Use
  Company Number: None

PATIENT
  Sex: Male

DRUGS (1)
  1. TADALAFIL [Suspect]
     Active Substance: TADALAFIL
     Indication: Product used for unknown indication
     Dosage: 5 MG, QD
     Route: 065

REACTIONS (2)
  - Back pain [Not Recovered/Not Resolved]
  - Dyspepsia [Unknown]

NARRATIVE: CASE EVENT DATE: 20220101
